FAERS Safety Report 15221296 (Version 1)
Quarter: 2018Q3

REPORT INFORMATION
  Report Type: Spontaneous
  Country: US (occurrence: US)
  Receive Date: 20180705
  Receipt Date: 20180705
  Transmission Date: 20181010
  Serious: Yes (Hospitalization)
  Sender: FDA-Public Use
  Company Number: None

PATIENT
  Age: 23 Year
  Sex: Female

DRUGS (1)
  1. MIRENA [Suspect]
     Active Substance: LEVONORGESTREL
     Dates: start: 20150102, end: 20180702

REACTIONS (3)
  - Pelvic inflammatory disease [None]
  - Infection [None]
  - Abdominal pain upper [None]

NARRATIVE: CASE EVENT DATE: 20180701
